FAERS Safety Report 4514979-0 (Version None)
Quarter: 2004Q4

REPORT INFORMATION
  Report Type: 
  Country: None (occurrence: None)
  Receive Date: 20041201
  Receipt Date: 20041119
  Transmission Date: 20050328
  Serious: Yes (Other)
  Sender: FDA-Public Use
  Company Number: AU-BRISTOL-MYERS SQUIBB COMPANY-12771663

PATIENT
  Age: 64 Year
  Sex: Male
  Weight: 74 kg

DRUGS (1)
  1. PRAVACHOL [Suspect]
     Dates: start: 20010221, end: 20010404

REACTIONS (2)
  - AMNESIA [None]
  - THINKING ABNORMAL [None]
